FAERS Safety Report 23839848 (Version 3)
Quarter: 2024Q2

REPORT INFORMATION
  Report Type: Spontaneous
  Country: JP (occurrence: JP)
  Receive Date: 20240510
  Receipt Date: 20240530
  Transmission Date: 20240715
  Serious: Yes (Life-Threatening, Hospitalization)
  Sender: FDA-Public Use
  Company Number: JP-CHUGAI-2024015025

PATIENT
  Age: 49 Year
  Sex: Male

DRUGS (1)
  1. HEMLIBRA [Suspect]
     Active Substance: EMICIZUMAB-KXWH
     Indication: Haemophilia A without inhibitors
     Dosage: 3 MILLIGRAM/KILOGRAM, ONCE/2WEEKS
     Route: 058
     Dates: start: 20240301

REACTIONS (1)
  - Oesophageal varices haemorrhage [Not Recovered/Not Resolved]

NARRATIVE: CASE EVENT DATE: 20240428
